FAERS Safety Report 25031118 (Version 1)
Quarter: 2025Q1

REPORT INFORMATION
  Report Type: Spontaneous
  Country: US (occurrence: US)
  Receive Date: 20250303
  Receipt Date: 20250303
  Transmission Date: 20250409
  Serious: No
  Sender: ROCHE
  Company Number: US-ROCHE-10000221637

PATIENT
  Age: 43 Year
  Sex: Male
  Weight: 80.29 kg

DRUGS (3)
  1. OCREVUS [Suspect]
     Active Substance: OCRELIZUMAB
     Indication: Multiple sclerosis
     Dosage: LOADING DOSE, ONCE AT WEEK 0 AND WEEK 2
     Route: 042
     Dates: start: 20250219
  2. ACETAMINOPHEN [Concomitant]
     Active Substance: ACETAMINOPHEN
     Route: 048
  3. DIPHENHYDRAMINE [Concomitant]
     Active Substance: DIPHENHYDRAMINE
     Route: 042

REACTIONS (1)
  - Immune-mediated enterocolitis [Unknown]

NARRATIVE: CASE EVENT DATE: 20250221
